FAERS Safety Report 5967442-4 (Version None)
Quarter: 2008Q4

REPORT INFORMATION
  Report Type: 
  Country: None (occurrence: None)
  Receive Date: 20081125
  Receipt Date: 20081110
  Transmission Date: 20090506
  Serious: Yes (Death)
  Sender: FDA-Public Use
  Company Number: IT-GENENTECH-271880

PATIENT
  Sex: Female

DRUGS (7)
  1. BEVACIZUMAB [Suspect]
     Indication: DRUG USE FOR UNKNOWN INDICATION
     Dosage: UNK MG, UNK
     Route: 042
     Dates: start: 20080716, end: 20080910
  2. IRINOTECAN HYDROCHLORIDE [Suspect]
     Indication: DRUG USE FOR UNKNOWN INDICATION
     Dosage: 279 MG, UNK
     Route: 042
     Dates: start: 20080716, end: 20080910
  3. FLUOROURACIL [Suspect]
     Indication: DRUG USE FOR UNKNOWN INDICATION
     Dosage: 620 MG, UNK
     Route: 040
     Dates: start: 20080716, end: 20080911
  4. FLUOROURACIL [Suspect]
     Dosage: 930 MG, UNK
     Route: 042
     Dates: start: 20080716, end: 20080912
  5. FOLINIC ACID [Suspect]
     Indication: DRUG USE FOR UNKNOWN INDICATION
     Dosage: 155 MG, UNK
     Route: 042
     Dates: start: 20080716, end: 20080911
  6. KCL-RETARD [Concomitant]
     Indication: DRUG USE FOR UNKNOWN INDICATION
     Dosage: UNK
  7. DIOSMIN [Concomitant]
     Indication: DRUG USE FOR UNKNOWN INDICATION
     Dosage: UNK
     Dates: start: 19720101

REACTIONS (1)
  - ANAEMIA [None]
